FAERS Safety Report 5156160-0 (Version None)
Quarter: 2006Q4

REPORT INFORMATION
  Report Type: 
  Country: None (occurrence: None)
  Receive Date: 20061122
  Receipt Date: 20061024
  Transmission Date: 20070319
  Serious: Yes (Other)
  Sender: FDA-Public Use
  Company Number: DE-ELI_LILLY_AND_COMPANY-DE200611000034

PATIENT
  Age: 67 Year
  Sex: Male

DRUGS (7)
  1. ATORVASTATIN CALCIUM [Concomitant]
  2. CYMBALTA [Suspect]
     Indication: DEPRESSION
     Dosage: 30 MG, DAILY (1/D)
     Route: 048
     Dates: start: 20060828, end: 20061001
  3. CYMBALTA [Suspect]
     Dosage: 60 MG, UNK
     Route: 048
  4. NORVASC [Concomitant]
  5. ATACAND [Concomitant]
  6. PANTOZOL [Concomitant]
     Route: 048
  7. METOPROLOL [Concomitant]

REACTIONS (3)
  - DIABETES INSIPIDUS [None]
  - NOCTURIA [None]
  - POLYURIA [None]
